FAERS Safety Report 20908283 (Version 1)
Quarter: 2022Q2

REPORT INFORMATION
  Report Type: Spontaneous
  Country: US (occurrence: US)
  Receive Date: 20220602
  Receipt Date: 20220602
  Transmission Date: 20220721
  Serious: Yes (Other)
  Sender: FDA-Public Use
  Company Number: US-SA-SAC20220528000036

PATIENT
  Age: 57 Year
  Sex: Male

DRUGS (1)
  1. ZANTAC [Suspect]
     Active Substance: RANITIDINE HYDROCHLORIDE
     Indication: Dyspepsia
     Dosage: 150 MG; FREQUENCY:OTHER
     Route: 065
     Dates: start: 199601, end: 201112

REACTIONS (1)
  - Prostate cancer stage I [Recovering/Resolving]

NARRATIVE: CASE EVENT DATE: 20130301
